FAERS Safety Report 20766283 (Version 1)
Quarter: 2022Q2

REPORT INFORMATION
  Report Type: Spontaneous
  Country: US (occurrence: US)
  Receive Date: 20220428
  Receipt Date: 20220428
  Transmission Date: 20220721
  Serious: Yes (Other)
  Sender: FDA-Public Use
  Company Number: US-JNJFOC-20220438716

PATIENT

DRUGS (1)
  1. FIBRINOGEN HUMAN\THROMBIN HUMAN [Suspect]
     Active Substance: FIBRINOGEN HUMAN\THROMBIN HUMAN
     Indication: Tissue sealing
     Route: 061

REACTIONS (4)
  - Post procedural complication [Unknown]
  - Hernia [Unknown]
  - Off label use [Unknown]
  - Product use in unapproved indication [Unknown]
